FAERS Safety Report 21777219 (Version 1)
Quarter: 2022Q4

REPORT INFORMATION
  Report Type: Spontaneous
  Country: US (occurrence: US)
  Receive Date: 20221226
  Receipt Date: 20221226
  Transmission Date: 20230113
  Serious: No
  Sender: FDA-Public Use
  Company Number: US-BAUSCHBL-2022BNL002884

PATIENT
  Age: 72 Year
  Sex: Male

DRUGS (2)
  1. SODIUM SULFACETAMIDE [Suspect]
     Active Substance: SULFACETAMIDE SODIUM
     Indication: Eye infection
     Dosage: (SPACED EVENLY) FOR 5 DAYS
     Route: 047
     Dates: start: 20221214, end: 202212
  2. OMEPRAZOLE [Concomitant]
     Active Substance: OMEPRAZOLE
     Indication: Product used for unknown indication
     Dosage: QD
     Route: 048

REACTIONS (3)
  - Instillation site discharge [Recovered/Resolved]
  - Instillation site pruritus [Recovering/Resolving]
  - Instillation site erythema [Recovering/Resolving]

NARRATIVE: CASE EVENT DATE: 20221214
